FAERS Safety Report 19747861 (Version 2)
Quarter: 2021Q4

REPORT INFORMATION
  Report Type: Spontaneous
  Country: US (occurrence: US)
  Receive Date: 20210826
  Receipt Date: 20211019
  Transmission Date: 20220303
  Serious: No
  Sender: FDA-Public Use
  Company Number: US-LUNDBECK-DKLU3037012

PATIENT
  Age: 24 Year
  Sex: Female

DRUGS (2)
  1. ONFI [Suspect]
     Active Substance: CLOBAZAM
     Indication: Lennox-Gastaut syndrome
     Route: 048
  2. ONFI [Suspect]
     Active Substance: CLOBAZAM
     Indication: Seizure

REACTIONS (2)
  - Product dose omission issue [Unknown]
  - Product use complaint [Unknown]
